FAERS Safety Report 19495162 (Version 1)
Quarter: 2021Q3

REPORT INFORMATION
  Report Type: Spontaneous
  Country: US (occurrence: US)
  Receive Date: 20210705
  Receipt Date: 20210705
  Transmission Date: 20211014
  Serious: No
  Sender: FDA-Public Use
  Company Number: US-ASTRAZENECA-2021A507583

PATIENT
  Sex: Male
  Weight: 72.6 kg

DRUGS (2)
  1. BREZTRI AEROSPHERE [Suspect]
     Active Substance: BUDESONIDE\FORMOTEROL\GLYCOPYRRONIUM
     Indication: DYSPNOEA
     Route: 055
     Dates: start: 20210526
  2. BREZTRI AEROSPHERE [Suspect]
     Active Substance: BUDESONIDE\FORMOTEROL\GLYCOPYRRONIUM
     Indication: EMPHYSEMA
     Route: 055
     Dates: start: 20210526

REACTIONS (4)
  - Condition aggravated [Not Recovered/Not Resolved]
  - Pollakiuria [Not Recovered/Not Resolved]
  - Speech disorder [Not Recovered/Not Resolved]
  - Dysphonia [Not Recovered/Not Resolved]
